FAERS Safety Report 6800910-1 (Version None)
Quarter: 2010Q2

REPORT INFORMATION
  Report Type: 
  Country: None (occurrence: None)
  Receive Date: 20100629
  Receipt Date: 20100616
  Transmission Date: 20101027
  Serious: Yes (Hospitalization, Other)
  Sender: FDA-Public Use
  Company Number: PHHY2010AU39719

PATIENT
  Sex: Male

DRUGS (3)
  1. CLOZARIL [Suspect]
     Dosage: 12.5 MG
     Dates: start: 20100524
  2. CLOZARIL [Suspect]
     Dosage: 100 MG
     Dates: start: 20100602
  3. CLOZARIL [Suspect]
     Dosage: 200 MG
     Dates: start: 20100609, end: 20100616

REACTIONS (4)
  - C-REACTIVE PROTEIN INCREASED [None]
  - CHEST PAIN [None]
  - DYSPNOEA [None]
  - TROPONIN INCREASED [None]
